FAERS Safety Report 10137746 (Version 1)
Quarter: 2014Q2

REPORT INFORMATION
  Report Type: Spontaneous
  Country: US (occurrence: US)
  Receive Date: 20140429
  Receipt Date: 20140429
  Transmission Date: 20141212
  Serious: Yes (Hospitalization, Other)
  Sender: FDA-Public Use
  Company Number: US-BAYER-2014-059998

PATIENT
  Age: 20 Year
  Sex: Female
  Weight: 54 kg

DRUGS (3)
  1. YAZ [Suspect]
  2. GIANVI [Suspect]
  3. SEASONIQUE [Suspect]
     Dosage: UNK
     Dates: end: 201110

REACTIONS (1)
  - Pulmonary embolism [None]
